FAERS Safety Report 20232286 (Version 1)
Quarter: 2021Q4

REPORT INFORMATION
  Report Type: Spontaneous
  Country: DE (occurrence: DE)
  Receive Date: 20211227
  Receipt Date: 20211227
  Transmission Date: 20220303
  Serious: Yes (Life-Threatening, Hospitalization, Other)
  Sender: FDA-Public Use
  Company Number: DE-AMNEAL PHARMACEUTICALS-2021-AMRX-05052

PATIENT
  Age: 19 Year
  Sex: Female

DRUGS (2)
  1. VENLAFAXINE HYDROCHLORIDE [Suspect]
     Active Substance: VENLAFAXINE HYDROCHLORIDE
     Indication: Depression
     Dosage: 18 GRAM, SINGLE
     Route: 048
  2. VENLAFAXINE HYDROCHLORIDE [Suspect]
     Active Substance: VENLAFAXINE HYDROCHLORIDE
     Dosage: UNK
     Route: 048

REACTIONS (7)
  - Stress cardiomyopathy [Recovered/Resolved]
  - Multiple organ dysfunction syndrome [Recovered/Resolved]
  - Disseminated intravascular coagulation [Recovered/Resolved]
  - Cardiac arrest [Recovered/Resolved]
  - Generalised tonic-clonic seizure [Recovered/Resolved]
  - Suicide attempt [Unknown]
  - Intentional overdose [Unknown]
